FAERS Safety Report 10049504 (Version 1)
Quarter: 2014Q1

REPORT INFORMATION
  Report Type: Spontaneous
  Country: US (occurrence: None)
  Receive Date: 20140331
  Receipt Date: 20140331
  Transmission Date: 20141002
  Serious: Yes (Other)
  Sender: FDA-Public Use
  Company Number: None

PATIENT
  Age: 53 Year
  Sex: Female
  Weight: 89.36 kg

DRUGS (2)
  1. SALON PAS [Suspect]
     Indication: MUSCULOSKELETAL PAIN
     Dosage: PATCH 7 CM X 10 CM ONCE DAILY
     Dates: start: 20140327, end: 20140328
  2. SALON PAS [Suspect]
     Indication: NECK PAIN
     Dosage: PATCH 7 CM X 10 CM ONCE DAILY
     Dates: start: 20140327, end: 20140328

REACTIONS (6)
  - Panic attack [None]
  - Dyspnoea [None]
  - Palpitations [None]
  - Anxiety [None]
  - Vision blurred [None]
  - Tinnitus [None]
